FAERS Safety Report 23143167 (Version 1)
Quarter: 2023Q4

REPORT INFORMATION
  Report Type: Spontaneous
  Country: US (occurrence: US)
  Receive Date: 20231103
  Receipt Date: 20231103
  Transmission Date: 20240110
  Serious: No
  Sender: FDA-Public Use
  Company Number: US-MYOVANT SCIENCES GMBH-2023MYSCI0900641

PATIENT
  Age: 73 Year
  Sex: Male

DRUGS (4)
  1. ORGOVYX [Suspect]
     Active Substance: RELUGOLIX
     Indication: Prostate cancer
     Dosage: 120 MILLIGRAM, QD
     Route: 048
     Dates: end: 20230918
  2. XTANDI [Suspect]
     Active Substance: ENZALUTAMIDE
     Indication: Prostatic disorder
     Dosage: 80 MILLIGRAM, BID
     Route: 065
     Dates: start: 20230908, end: 20230911
  3. ZOMETA [Suspect]
     Active Substance: ZOLEDRONIC ACID
     Indication: Bone disorder
     Dosage: UNK UNK, Q3MO
     Route: 065
     Dates: start: 20230824
  4. CASODEX [Concomitant]
     Active Substance: BICALUTAMIDE
     Indication: Prostatic disorder
     Dosage: 50 MILLIGRAM, QD
     Route: 065

REACTIONS (8)
  - Hot flush [Unknown]
  - Dizziness [Recovered/Resolved]
  - Chest pain [Recovered/Resolved]
  - Vein disorder [Recovered/Resolved]
  - Pruritus [Recovered/Resolved]
  - Fatigue [Recovered/Resolved]
  - Pain in extremity [Recovered/Resolved]
  - Therapy interrupted [Unknown]

NARRATIVE: CASE EVENT DATE: 20230919
